FAERS Safety Report 8237511-7 (Version None)
Quarter: 2012Q1

REPORT INFORMATION
  Report Type: 
  Country: None (occurrence: None)
  Receive Date: 20120327
  Receipt Date: 20120322
  Transmission Date: 20120608
  Serious: Yes (Other)
  Sender: FDA-Public Use
  Company Number: PHHY2012BR025698

PATIENT
  Sex: Female

DRUGS (4)
  1. ATENOLOL [Concomitant]
  2. DIOVAN HCT [Suspect]
     Indication: HYPERTENSION
     Dosage: 1 DF (160MG VALS/12,5MG HYDROCHLOROTHIAZIDE) DAILY
     Route: 048
  3. DIOVAN HCT [Suspect]
     Dosage: 1 DF (320MG VALS/12,5 MG HYDROCHLOROTHIAZIDE), UNK
  4. CARDIZEM [Concomitant]

REACTIONS (3)
  - DEPRESSED MOOD [None]
  - VIITH NERVE PARALYSIS [None]
  - BLOOD PRESSURE INCREASED [None]
